FAERS Safety Report 13823353 (Version 1)
Quarter: 2017Q3

REPORT INFORMATION
  Report Type: Report from Study
  Country: DE (occurrence: DE)
  Receive Date: 20170802
  Receipt Date: 20170802
  Transmission Date: 20171127
  Serious: Yes (Other)
  Sender: FDA-Public Use
  Company Number: DE-ROCHE-1971445

PATIENT
  Sex: Female
  Weight: 65 kg

DRUGS (14)
  1. RANIBIZUMAB. [Suspect]
     Active Substance: RANIBIZUMAB
     Indication: NEOVASCULAR AGE-RELATED MACULAR DEGENERATION
     Dosage: 0.5 MG,1X (PRE-FILLED SYRINGE)
     Route: 031
     Dates: start: 20151005
  2. RANIBIZUMAB. [Suspect]
     Active Substance: RANIBIZUMAB
     Dosage: 0.5 MG,1X (PRE-FILLED SYRINGE)
     Route: 031
     Dates: start: 20151207
  3. RANIBIZUMAB. [Suspect]
     Active Substance: RANIBIZUMAB
     Dosage: 0.5 MG,1X (PRE-FILLED SYRINGE)
     Route: 031
     Dates: start: 20160224
  4. RANIBIZUMAB. [Suspect]
     Active Substance: RANIBIZUMAB
     Dosage: 0.5 MG,1X (PRE-FILLED SYRINGE)
     Route: 031
     Dates: start: 20160511
  5. RANIBIZUMAB. [Suspect]
     Active Substance: RANIBIZUMAB
     Dosage: 0.5 MG,1X (PRE-FILLED SYRINGE)
     Route: 031
     Dates: start: 20160721
  6. RANIBIZUMAB. [Suspect]
     Active Substance: RANIBIZUMAB
     Dosage: 0.5 MG,1X (PRE-FILLED SYRINGE)
     Route: 031
     Dates: start: 20160825
  7. RANIBIZUMAB. [Suspect]
     Active Substance: RANIBIZUMAB
     Dosage: 0.5 MG,1X (PRE-FILLED SYRINGE)
     Route: 031
     Dates: start: 20170112, end: 20170112
  8. RANIBIZUMAB. [Suspect]
     Active Substance: RANIBIZUMAB
     Dosage: 0.5 MG,1X (PRE-FILLED SYRINGE)
     Route: 031
     Dates: start: 20151104
  9. RANIBIZUMAB. [Suspect]
     Active Substance: RANIBIZUMAB
     Dosage: 0.5 MG,1X (PRE-FILLED SYRINGE)
     Route: 031
     Dates: start: 20161117
  10. RANIBIZUMAB. [Suspect]
     Active Substance: RANIBIZUMAB
     Dosage: 0.5 MG,1X (PRE-FILLED SYRINGE)
     Route: 031
     Dates: start: 20161006
  11. RANIBIZUMAB. [Suspect]
     Active Substance: RANIBIZUMAB
     Dosage: 0.5 MG,1X (PRE-FILLED SYRINGE)
     Route: 031
     Dates: start: 20170322, end: 20170322
  12. RANIBIZUMAB. [Suspect]
     Active Substance: RANIBIZUMAB
     Dosage: 0.5 MG,1X (PRE-FILLED SYRINGE)
     Route: 031
     Dates: start: 20160104
  13. RANIBIZUMAB. [Suspect]
     Active Substance: RANIBIZUMAB
     Dosage: 0.5 MG,1X (PRE-FILLED SYRINGE)
     Route: 031
     Dates: start: 20160407
  14. RANIBIZUMAB. [Suspect]
     Active Substance: RANIBIZUMAB
     Dosage: 0.5 MG,1X (PRE-FILLED SYRINGE)
     Route: 031
     Dates: start: 20160613

REACTIONS (1)
  - Keratitis [Recovered/Resolved]

NARRATIVE: CASE EVENT DATE: 20170113
